FAERS Safety Report 7465132-2 (Version None)
Quarter: 2011Q2

REPORT INFORMATION
  Report Type: 
  Country: None (occurrence: None)
  Receive Date: 20110509
  Receipt Date: 20110426
  Transmission Date: 20111010
  Serious: Yes (Hospitalization, Other)
  Sender: FDA-Public Use
  Company Number: US-JNJFOC-20110500073

PATIENT
  Sex: Female
  Weight: 64.41 kg

DRUGS (10)
  1. OPANA [Suspect]
     Indication: TOOTHACHE
     Route: 048
  2. FENTANYL [Suspect]
     Indication: BACK PAIN
     Dosage: EVERY 53 TO 55 HOURS
     Route: 062
  3. FENTANYL [Suspect]
     Dosage: EVERY 53 TO 55 HOURS
     Route: 062
  4. FENTANYL-100 [Suspect]
     Dosage: EVERY 53 TO 55 HOURS
     Route: 062
  5. OXYCONTIN [Suspect]
     Indication: PAIN
     Route: 048
  6. OPANA [Suspect]
     Indication: PAIN
     Route: 048
  7. FENTANYL-100 [Suspect]
     Indication: BACK PAIN
     Dosage: EVERY 53 TO 55 HOURS
     Route: 062
  8. FENTANYL-100 [Suspect]
     Indication: BACK PAIN
     Dosage: EVERY 53 TO 55 HOURS
     Route: 062
  9. OXYCONTIN [Suspect]
     Indication: TOOTHACHE
     Route: 048
  10. FENTANYL CITRATE [Suspect]
     Indication: BACK PAIN
     Dosage: EVERY 53 TO 55 HOURS
     Route: 062

REACTIONS (6)
  - DRUG INEFFECTIVE [None]
  - DRUG PRESCRIBING ERROR [None]
  - SCIATICA [None]
  - BACK PAIN [None]
  - TOOTHACHE [None]
  - WEIGHT FLUCTUATION [None]
